FAERS Safety Report 5780839-0 (Version None)
Quarter: 2008Q2

REPORT INFORMATION
  Report Type: 
  Country: None (occurrence: None)
  Receive Date: 20080620
  Receipt Date: 20080610
  Transmission Date: 20081010
  Serious: Yes (Other)
  Sender: FDA-Public Use
  Company Number: US-PFIZER INC-2008040735

PATIENT
  Sex: Male
  Weight: 50 kg

DRUGS (3)
  1. XALATAN [Suspect]
     Indication: NORMAL TENSION GLAUCOMA
     Dosage: TEXT:ONE DROP IN EACH EYE
     Route: 047
  2. LIPITOR [Concomitant]
     Indication: BLOOD CHOLESTEROL
  3. VALSARTAN [Concomitant]
     Indication: BLOOD PRESSURE

REACTIONS (5)
  - BREAST CANCER MALE [None]
  - FOREIGN BODY SENSATION IN EYES [None]
  - PSEUDOPHAKIA [None]
  - SKIN IRRITATION [None]
  - SURGERY [None]
